FAERS Safety Report 6574911-5 (Version None)
Quarter: 2010Q1

REPORT INFORMATION
  Report Type: 
  Country: None (occurrence: None)
  Receive Date: 20100209
  Receipt Date: 20100129
  Transmission Date: 20100710
  Serious: Yes (Hospitalization, Other)
  Sender: FDA-Public Use
  Company Number: JP-SOLVAY-00309007985

PATIENT
  Age: 24221 Day
  Sex: Male
  Weight: 54 kg

DRUGS (8)
  1. GASMOTIN [Concomitant]
     Indication: GASTROINTESTINAL DISORDER POSTOPERATIVE
     Dosage: DAILY DOSE: 15 MILLIGRAM(S)
     Route: 048
     Dates: start: 20090805
  2. CREON [Suspect]
     Indication: NUTRITIONAL CONDITION ABNORMAL
     Dosage: DAILY DOSE: 12 DOSAGE FORM, AS USED: AFTER LUNCH
     Route: 048
     Dates: start: 20090805
  3. URSO 250 [Concomitant]
     Indication: PANCREATIC INSUFFICIENCY
     Dosage: DAILY DOSE: 300 MILLIGRAM(S)
     Route: 048
     Dates: start: 20090805
  4. PARIET [Concomitant]
     Indication: GASTRIC ULCER
     Dosage: DAILY DOSE: 10 MILLIGRAM(S)
     Route: 048
     Dates: start: 20090805
  5. HUMALOG [Concomitant]
     Indication: DIABETES MELLITUS
     Dosage: DAILY DOSE: 22-36 IU, AS USED: 2-12 IU, FREQUENCY: 3 TIMES A DAY; HUMALOG KIT
     Route: 042
     Dates: start: 20090805, end: 20090902
  6. HUMALOG [Concomitant]
     Dosage: DAILY DOSE: 22-36 IU, AS USED: 2-12 IU, FREQUENCY: 3 TIMES A DAY; HUMOLOG MILIOPEN
     Route: 042
     Dates: start: 20090903
  7. LANTUS [Concomitant]
     Indication: DIABETES MELLITUS
     Dosage: DAILY DOSE: 8 INTERNATIONAL UNIT(S), FREQUENCY: 0-1 TIME A DAY
     Route: 042
     Dates: start: 20090805
  8. FLOMOX [Concomitant]
     Indication: CHOLANGITIS
     Dosage: DAILY DOSE: 200 MILLIGRAM(S)
     Route: 048
     Dates: start: 20090903, end: 20090908

REACTIONS (2)
  - CLONIC CONVULSION [None]
  - HYPOGLYCAEMIA [None]
